FAERS Safety Report 18733759 (Version 3)
Quarter: 2021Q2

REPORT INFORMATION
  Report Type: Report from Study
  Country: None (occurrence: US)
  Receive Date: 20210113
  Receipt Date: 20210409
  Transmission Date: 20210717
  Serious: No
  Sender: FDA-Public Use
  Company Number: US-BIOVITRUM-2019US2877

PATIENT
  Age: 71 Year
  Sex: Female

DRUGS (2)
  1. KINERET [Suspect]
     Active Substance: ANAKINRA
     Route: 058
     Dates: start: 20190314
  2. KINERET [Suspect]
     Active Substance: ANAKINRA
     Indication: CRYSTAL ARTHROPATHY
     Route: 058
     Dates: start: 20190311

REACTIONS (16)
  - Fungal infection [Unknown]
  - Psychiatric symptom [Unknown]
  - Asthenia [Unknown]
  - Injection site pain [Unknown]
  - Arthralgia [Unknown]
  - Musculoskeletal stiffness [Unknown]
  - Product dose omission issue [Unknown]
  - Off label use [Not Recovered/Not Resolved]
  - Pain in extremity [Unknown]
  - Depression [Unknown]
  - Joint injury [Unknown]
  - Dry mouth [Unknown]
  - Post procedural infection [Recovered/Resolved]
  - Fear [Unknown]
  - Candida infection [Unknown]
  - Intentional product misuse [Unknown]

NARRATIVE: CASE EVENT DATE: 20190314
